FAERS Safety Report 12906996 (Version 1)
Quarter: 2016Q4

REPORT INFORMATION
  Report Type: Spontaneous
  Country: US (occurrence: US)
  Receive Date: 20161101
  Receipt Date: 20161101
  Transmission Date: 20170207
  Serious: Yes (Hospitalization, Other)
  Sender: FDA-Public Use
  Company Number: None

PATIENT
  Age: 33 Year
  Sex: Female
  Weight: 99 kg

DRUGS (6)
  1. VITAMIN C [Concomitant]
     Active Substance: ASCORBIC ACID
  2. LEXAPRO [Concomitant]
     Active Substance: ESCITALOPRAM OXALATE
  3. BIRTH CONTROL PILLS (TRI SPRINTEC) [Concomitant]
  4. MULTIVITAMIN - CVS BRAND SELENIUM [Concomitant]
  5. CIMZIA [Suspect]
     Active Substance: CERTOLIZUMAB PEGOL
     Indication: CROHN^S DISEASE
     Dosage: ?          QUANTITY:2 INJECTION(S);OTHER FREQUENCY:MONTHLY;?
     Route: 058
     Dates: start: 20150106, end: 20160720
  6. CALCIUM SUPPLEMENTS [Concomitant]
     Active Substance: CALCIUM

REACTIONS (5)
  - Seroma [None]
  - Abdominal hernia [None]
  - Staphylococcal infection [None]
  - Wound dehiscence [None]
  - Intervertebral disc operation [None]

NARRATIVE: CASE EVENT DATE: 20160929
